FAERS Safety Report 5076148-8 (Version None)
Quarter: 2006Q3

REPORT INFORMATION
  Report Type: 
  Country: None (occurrence: None)
  Receive Date: 20060809
  Receipt Date: 20060511
  Transmission Date: 20061208
  Serious: Yes (Disabling)
  Sender: FDA-Public Use
  Company Number: GB-MERCK-0605GBR00051

PATIENT
  Age: 70 Year
  Sex: Male

DRUGS (5)
  1. ZETIA [Suspect]
     Indication: HYPERCHOLESTEROLAEMIA
     Route: 048
     Dates: start: 20040101, end: 20060217
  2. CETIRIZINE HYDROCHLORIDE [Concomitant]
     Indication: HYPERSENSITIVITY
     Route: 065
     Dates: start: 19930714
  3. CLOPIDOGREL BISULFATE [Concomitant]
     Indication: HYPERSENSITIVITY
     Route: 065
     Dates: start: 20041229
  4. LANSOPRAZOLE [Concomitant]
     Indication: DYSPEPSIA
     Route: 065
     Dates: start: 20050201
  5. AMITRIPTYLINE HYDROCHLORIDE [Concomitant]
     Indication: SLEEP DISORDER
     Route: 065
     Dates: start: 20060321

REACTIONS (3)
  - BLOOD CREATINE PHOSPHOKINASE INCREASED [None]
  - MUSCULAR WEAKNESS [None]
  - MYALGIA [None]
